FAERS Safety Report 25900801 (Version 1)
Quarter: 2025Q4

REPORT INFORMATION
  Report Type: Spontaneous
  Country: US (occurrence: None)
  Receive Date: 20251008
  Receipt Date: 20251008
  Transmission Date: 20260117
  Serious: Yes (Other)
  Sender: FDA-CTU
  Company Number: None

PATIENT
  Age: 54 Year
  Sex: Female

DRUGS (1)
  1. LEVOFLOXACIN [Suspect]
     Active Substance: LEVOFLOXACIN
     Indication: Pneumonia
     Dates: start: 20250812, end: 20250915

REACTIONS (4)
  - Arthralgia [None]
  - Tendon disorder [None]
  - Rotator cuff syndrome [None]
  - Tendon rupture [None]

NARRATIVE: CASE EVENT DATE: 20250916
